FAERS Safety Report 26162485 (Version 1)
Quarter: 2025Q4

REPORT INFORMATION
  Report Type: Spontaneous
  Country: GB (occurrence: GB)
  Receive Date: 20251216
  Receipt Date: 20251216
  Transmission Date: 20260118
  Serious: Yes (Other)
  Sender: AUROBINDO
  Company Number: GB-MHRA-TPP375699C17497933YC1764663391132

PATIENT
  Age: 38 Year
  Sex: Male
  Weight: 90 kg

DRUGS (6)
  1. ACETAMINOPHEN [Suspect]
     Active Substance: ACETAMINOPHEN
     Indication: Product used for unknown indication
     Dosage: 500 MILLIGRAM
     Route: 065
  2. MIRTAZAPINE [Concomitant]
     Active Substance: MIRTAZAPINE
     Indication: Ill-defined disorder
     Dosage: UNK
     Route: 065
     Dates: start: 20250926, end: 20251107
  3. MINERAL OIL\PARAFFIN [Concomitant]
     Active Substance: MINERAL OIL\PARAFFIN
     Indication: Ill-defined disorder
     Dosage: USE AS DIRECTED
     Route: 065
  4. ALBUTEROL [Concomitant]
     Active Substance: ALBUTEROL
     Indication: Ill-defined disorder
     Dosage: 1-2 ACTUATION
     Route: 065
  5. SOPROBEC [Concomitant]
     Indication: Ill-defined disorder
     Dosage: 1-2 ACTUATION
     Route: 065
     Dates: start: 20250823, end: 20251028
  6. EASYHALER [Concomitant]
     Indication: Ill-defined disorder
     Dosage: 1-2 ACTUATION
     Route: 065

REACTIONS (1)
  - Hypersensitivity [Recovered/Resolved]

NARRATIVE: CASE EVENT DATE: 20250929
